FAERS Safety Report 8877482 (Version 1)
Quarter: 2012Q4

REPORT INFORMATION
  Report Type: Spontaneous
  Country: US (occurrence: None)
  Receive Date: 20121026
  Receipt Date: 20121026
  Transmission Date: 20130627
  Serious: Yes (Hospitalization, Other)
  Sender: FDA-Public Use
  Company Number: 2012P1060972

PATIENT
  Age: 48 Year
  Sex: Female
  Weight: 67.13 kg

DRUGS (10)
  1. FENTANYL PATCH 25 MCG/HR (NO PREF. NAME) [Suspect]
     Indication: FIBROMYALGIA
     Dosage: 1 Patch; Q3D; TDER
     Route: 062
     Dates: start: 201201, end: 20120417
  2. FENTANYL PATCH 25 MCG/HR (NO PREF. NAME) [Suspect]
     Indication: LUPUS ERYTHEMATOSUS
     Dosage: 1 Patch; Q3D; TDER
     Route: 062
     Dates: start: 201201, end: 20120417
  3. FENTANYL PATCH 25 MCG/HR (NO PREF. NAME) [Suspect]
     Dosage: 1 Patch; Q3D; TDER
     Route: 062
     Dates: start: 201201, end: 20120417
  4. OXYCODONE [Concomitant]
  5. PLAQUENIL [Concomitant]
  6. ZOLOFT [Concomitant]
  7. ALPRAZOLAM [Concomitant]
  8. PANTOPRAZOLE [Concomitant]
  9. SYNTHROID [Concomitant]
  10. UNSPECIFIED STEROID SHOTS [Concomitant]

REACTIONS (5)
  - Chest pain [None]
  - Feeling abnormal [None]
  - Oedema peripheral [None]
  - Pain in extremity [None]
  - Overdose [None]
